FAERS Safety Report 7589657-4 (Version None)
Quarter: 2011Q3

REPORT INFORMATION
  Report Type: 
  Country: None (occurrence: None)
  Receive Date: 20110705
  Receipt Date: 20110622
  Transmission Date: 20111222
  Serious: Yes (Death)
  Sender: FDA-Public Use
  Company Number: DE-ROCHE-786864

PATIENT
  Age: 55 Year
  Sex: Male

DRUGS (3)
  1. TRASTUZUMAB [Suspect]
     Route: 042
     Dates: start: 20110411, end: 20110531
  2. FLUOROURACIL [Suspect]
     Route: 042
     Dates: start: 20110411, end: 20110416
  3. CISPLATIN [Suspect]
     Route: 042
     Dates: start: 20110411, end: 20110531

REACTIONS (1)
  - NEOPLASM PROGRESSION [None]
